FAERS Safety Report 7009543-8 (Version None)
Quarter: 2010Q3

REPORT INFORMATION
  Report Type: 
  Country: None (occurrence: None)
  Receive Date: 20100923
  Receipt Date: 20100917
  Transmission Date: 20110219
  Serious: Yes (Hospitalization)
  Sender: FDA-Public Use
  Company Number: PHHO2010IT12661

PATIENT
  Sex: Male
  Weight: 68 kg

DRUGS (5)
  1. CERTICAN [Suspect]
     Indication: HEART TRANSPLANT
     Dosage: 10MG/DAY
     Route: 048
     Dates: start: 20100611
  2. FLUVASTATIN G-FLUV+XRTAB [Suspect]
     Indication: HEART TRANSPLANT
     Dosage: 40G/DAY
     Route: 048
     Dates: start: 20100527
  3. NEORAL [Suspect]
     Indication: HEART TRANSPLANT
     Dosage: 175MG/DAY
     Route: 048
     Dates: start: 20100502
  4. MYCOPHENOLATE MOFETIL [Suspect]
     Indication: HEART TRANSPLANT
     Dosage: UNK
     Route: 048
     Dates: start: 20100502, end: 20100713
  5. PREDNISONE [Concomitant]

REACTIONS (2)
  - ASTHENIA [None]
  - DYSPEPSIA [None]
